FAERS Safety Report 24578291 (Version 1)
Quarter: 2024Q4

REPORT INFORMATION
  Report Type: Report from Study
  Country: CH (occurrence: CH)
  Receive Date: 20241105
  Receipt Date: 20241105
  Transmission Date: 20250114
  Serious: Yes (Other)
  Sender: ABBVIE
  Company Number: CH-ABBVIE-5825491

PATIENT
  Age: 64 Year
  Sex: Female
  Weight: 72 kg

DRUGS (17)
  1. CARBIDOPA\LEVODOPA [Suspect]
     Active Substance: CARBIDOPA\LEVODOPA
     Indication: Parkinson^s disease
     Dosage: MD: 4.0 ML, CRD: 2.6 ML/H, ED: 1.0 ML, FREQUENCY TEXT: 16H THERAPY
     Route: 050
     Dates: start: 20240724, end: 20240724
  2. CARBIDOPA\LEVODOPA [Suspect]
     Active Substance: CARBIDOPA\LEVODOPA
     Dosage: MD: 5.0 ML, CRD: 1.8 ML/H, ED: 1.0 ML?FREQUENCY TEXT: 16H THERAPY
     Route: 050
     Dates: start: 20240619, end: 20240620
  3. CARBIDOPA\LEVODOPA [Suspect]
     Active Substance: CARBIDOPA\LEVODOPA
     Dosage: MD: 5.0 ML, CRD: 1.9 ML/H, ED: 1.0 ML?FREQUENCY TEXT: 16H THERAPY
     Route: 050
     Dates: start: 20240618, end: 20240619
  4. CARBIDOPA\LEVODOPA [Suspect]
     Active Substance: CARBIDOPA\LEVODOPA
     Dosage: MD: 3.0 ML, CRD: 1.8 ML/H, ED: 1.0 ML?FREQUENCY TEXT: 16H THERAPY
     Route: 050
     Dates: start: 20240620, end: 20240624
  5. CARBIDOPA\LEVODOPA [Suspect]
     Active Substance: CARBIDOPA\LEVODOPA
     Dosage: MD: 3.0 ML, CRD: 2.0 ML/H, ED: 1.0 ML?FREQUENCY TEXT: 16H THERAPY
     Route: 050
     Dates: start: 20240624, end: 20240629
  6. CARBIDOPA\LEVODOPA [Suspect]
     Active Substance: CARBIDOPA\LEVODOPA
     Dosage: MD: 3.0 ML, CRD: 2.1 ML/H, ED: 1.0 ML?FREQUENCY TEXT: 16H THERAPY
     Route: 050
     Dates: start: 20240629, end: 20240701
  7. CARBIDOPA\LEVODOPA [Suspect]
     Active Substance: CARBIDOPA\LEVODOPA
     Dosage: MD: 4.0 ML, CRD: 2.0 ML/H, ED: 1.5 ML?FREQUENCY TEXT: 16H THERAPY
     Route: 050
     Dates: start: 20240701, end: 20240712
  8. CARBIDOPA\LEVODOPA [Suspect]
     Active Substance: CARBIDOPA\LEVODOPA
     Dosage: MD: 4.0 ML, CRD: 2.1 ML/H, ED: 1.0 ML; FREQUENCY TEXT: 16H THERAPY
     Route: 050
     Dates: start: 20240712, end: 20240717
  9. CARBIDOPA\LEVODOPA [Suspect]
     Active Substance: CARBIDOPA\LEVODOPA
     Dosage: MD: 4.0 ML, CRD: 2.2 ML/H, ED: 1.0 ML, FREQUENCY TEXT: 16H THERAPY
     Route: 050
     Dates: start: 20240717, end: 20240719
  10. CARBIDOPA\LEVODOPA [Suspect]
     Active Substance: CARBIDOPA\LEVODOPA
     Dosage: MD: 4.0 ML, CRD: 2.0 ML/H, ED: 1.0 ML, FREQUENCY TEXT: 16H THERAPY
     Route: 050
     Dates: start: 20240719, end: 20240723
  11. CARBIDOPA\LEVODOPA [Suspect]
     Active Substance: CARBIDOPA\LEVODOPA
     Dosage: MD: 4.0 ML, CRD: 2.4 ML/H, ED: 1.0 ML, FREQUENCY TEXT: 16H THERAPY
     Route: 050
     Dates: start: 20240724, end: 20240729
  12. CARBIDOPA\LEVODOPA [Suspect]
     Active Substance: CARBIDOPA\LEVODOPA
     Dosage: MD: 4.0 ML, CRD: 2.4 ML/H, ED: 1.0 ML, FREQUENCY TEXT: 16H THERAPY
     Route: 050
     Dates: start: 20240723, end: 20240724
  13. CARBIDOPA\LEVODOPA [Suspect]
     Active Substance: CARBIDOPA\LEVODOPA
     Dosage: MD: 4.0 ML, CRD: 2.2 ML/H, ED: 1.0 ML, FREQUENCY TEXT: 16H THERAPY,?STOP DATE: 2024
     Route: 050
     Dates: start: 20240729
  14. CARBIDOPA\LEVODOPA [Suspect]
     Active Substance: CARBIDOPA\LEVODOPA
     Dosage: MD: 4.0 ML, CRD: 2.0 ML/H, ED: 1.0 ML; 16H THERAPY?FREQUENCY TEXT: 16H THERAPY
     Route: 050
     Dates: start: 20240804, end: 20240806
  15. CARBIDOPA\LEVODOPA [Suspect]
     Active Substance: CARBIDOPA\LEVODOPA
     Dosage: MD: 4.0 ML, CRD: 2.0 ML/H, ED: 1.5 ML; 16H THERAPY?LAST ADMIN DATE: AUG 2024
     Route: 050
     Dates: start: 20240806
  16. CARBIDOPA\LEVODOPA [Suspect]
     Active Substance: CARBIDOPA\LEVODOPA
     Dosage: MD: 4.0 ML, CRD: 2.1 ML/H, ED: 1.5 ML/FREQUENCY TEXT: 16H THERAPY
     Route: 050
     Dates: start: 20240821
  17. BENSERAZIDE HYDROCHLORIDE\LEVODOPA [Concomitant]
     Active Substance: BENSERAZIDE HYDROCHLORIDE\LEVODOPA
     Indication: Parkinson^s disease

REACTIONS (31)
  - Restlessness [Recovered/Resolved]
  - Freezing phenomenon [Not Recovered/Not Resolved]
  - Hyperhidrosis [Recovered/Resolved]
  - Arthralgia [Recovered/Resolved]
  - Hyperkinesia [Recovered/Resolved]
  - Freezing phenomenon [Recovered/Resolved]
  - Muscle tightness [Recovered/Resolved]
  - Muscle spasms [Not Recovered/Not Resolved]
  - Dystonia [Not Recovered/Not Resolved]
  - Gait inability [Recovered/Resolved]
  - Dyskinesia [Not Recovered/Not Resolved]
  - Fatigue [Recovered/Resolved]
  - Restlessness [Recovered/Resolved]
  - Musculoskeletal stiffness [Recovered/Resolved]
  - Intentional product misuse [Recovered/Resolved]
  - Stoma site irritation [Unknown]
  - Bradykinesia [Recovered/Resolved]
  - Sleep disorder [Recovered/Resolved]
  - Malaise [Not Recovered/Not Resolved]
  - Freezing phenomenon [Recovered/Resolved]
  - Pyrexia [Recovered/Resolved]
  - Underdose [Recovered/Resolved]
  - Feeling abnormal [Not Recovered/Not Resolved]
  - Asthenia [Recovered/Resolved]
  - Tension [Unknown]
  - Muscle spasms [Recovered/Resolved]
  - Influenza [Unknown]
  - Bradykinesia [Not Recovered/Not Resolved]
  - Gait disturbance [Not Recovered/Not Resolved]
  - Restlessness [Recovered/Resolved]
  - Hyperkinesia [Not Recovered/Not Resolved]

NARRATIVE: CASE EVENT DATE: 20240101
